FAERS Safety Report 22266610 (Version 1)
Quarter: 2023Q2

REPORT INFORMATION
  Report Type: Spontaneous
  Country: KR (occurrence: KR)
  Receive Date: 20230428
  Receipt Date: 20230428
  Transmission Date: 20230721
  Serious: No
  Sender: FDA-Public Use
  Company Number: KR-PFIZER INC-PV202300074591

PATIENT
  Age: 8 Year
  Sex: Male

DRUGS (1)
  1. GENOTROPIN [Suspect]
     Active Substance: SOMATROPIN
     Indication: Short stature
     Dosage: 3 IU, 6 TIMES A WEEK, 7 TIMES A WEEK, 7 TIMES A WEEK
     Dates: start: 20230110

REACTIONS (2)
  - Poor quality product administered [Unknown]
  - Device breakage [Unknown]
